FAERS Safety Report 10086387 (Version 1)
Quarter: 2014Q2

REPORT INFORMATION
  Report Type: Spontaneous
  Country: US (occurrence: None)
  Receive Date: 20140417
  Receipt Date: 20140417
  Transmission Date: 20141212
  Serious: Yes (Other)
  Sender: FDA-Public Use
  Company Number: None

PATIENT
  Age: 48 Year
  Sex: Female
  Weight: 95.26 kg

DRUGS (2)
  1. QNASL [Suspect]
     Indication: MULTIPLE ALLERGIES
     Dosage: TWICE IN EACH NOSTRIL ONCE DAY?ONCE DAILY ?INHALATION
     Route: 055
     Dates: start: 20131001, end: 20140116
  2. QNASL [Suspect]
     Indication: RHINORRHOEA
     Dosage: TWICE IN EACH NOSTRIL ONCE DAY?ONCE DAILY ?INHALATION
     Route: 055
     Dates: start: 20131001, end: 20140116

REACTIONS (5)
  - Scab [None]
  - Pain [None]
  - Discomfort [None]
  - Nasal septum perforation [None]
  - Skin discolouration [None]
